FAERS Safety Report 8363255-7 (Version None)
Quarter: 2012Q2

REPORT INFORMATION
  Report Type: 
  Country: None (occurrence: None)
  Receive Date: 20120516
  Receipt Date: 20110405
  Transmission Date: 20120825
  Serious: No
  Sender: FDA-Public Use
  Company Number: US-GLAXOSMITHKLINE-A0921473A

PATIENT
  Age: 59 Year
  Sex: Female

DRUGS (4)
  1. BACTROBAN [Suspect]
     Indication: PROPHYLAXIS
     Dosage: 1APP TWICE PER DAY
     Route: 045
     Dates: start: 20110402, end: 20110404
  2. AMOXICILLIN [Concomitant]
  3. CYTOMEL [Concomitant]
  4. LEVOXYL [Concomitant]

REACTIONS (3)
  - HEADACHE [None]
  - NASAL CONGESTION [None]
  - RHINITIS [None]
